FAERS Safety Report 22073707 (Version 1)
Quarter: 2023Q1

REPORT INFORMATION
  Report Type: Spontaneous
  Country: US (occurrence: US)
  Receive Date: 20230308
  Receipt Date: 20230308
  Transmission Date: 20230418
  Serious: Yes (Other)
  Sender: FDA-Public Use
  Company Number: US-PFIZER INC-PV202300042162

PATIENT
  Age: 31 Year
  Sex: Male

DRUGS (1)
  1. XELJANZ XR [Suspect]
     Active Substance: TOFACITINIB CITRATE
     Dosage: 11 MG

REACTIONS (7)
  - Autoimmune disorder [Unknown]
  - Asthenia [Unknown]
  - Insomnia [Unknown]
  - Impaired healing [Unknown]
  - Migraine [Unknown]
  - Wound [Unknown]
  - Ingrowing nail [Unknown]
